FAERS Safety Report 15631603 (Version 1)
Quarter: 2018Q4

REPORT INFORMATION
  Report Type: Spontaneous
  Country: GB (occurrence: GB)
  Receive Date: 20181119
  Receipt Date: 20181119
  Transmission Date: 20190205
  Serious: Yes (Other)
  Sender: FDA-Public Use
  Company Number: GB-TEVA-2018-GB-977669

PATIENT
  Age: 64 Year
  Sex: Female
  Weight: 73 kg

DRUGS (3)
  1. DOXYCYCLINE. [Concomitant]
     Active Substance: DOXYCYCLINE
     Dosage: 1 DOSAGE FORMS DAILY; TWO IMMEDIATELY THEN ONE DAILY.
     Dates: start: 20181009, end: 20181016
  2. ENOXAPARIN [Concomitant]
     Active Substance: ENOXAPARIN
     Dosage: INJECT DAILY AS DIRECTED
     Dates: start: 20180216
  3. CO-AMOXICLAV [Suspect]
     Active Substance: AMOXICILLIN\CLAVULANATE POTASSIUM
     Dosage: 500MG/125MG
     Route: 065
     Dates: start: 20181025

REACTIONS (2)
  - Vomiting [Recovered/Resolved]
  - Malaise [Unknown]

NARRATIVE: CASE EVENT DATE: 20181025
